FAERS Safety Report 13485372 (Version 1)
Quarter: 2017Q2

REPORT INFORMATION
  Report Type: Spontaneous
  Country: GB (occurrence: GB)
  Receive Date: 20170426
  Receipt Date: 20170426
  Transmission Date: 20170830
  Serious: Yes (Hospitalization, Disabling, Congenital Anomaly, Other)
  Sender: FDA-Public Use
  Company Number: GB-LHC-2017096

PATIENT
  Sex: Female

DRUGS (1)
  1. NITROUS OXIDE (GENERIC) [Suspect]
     Active Substance: NITROUS OXIDE
     Route: 064
     Dates: start: 19901024

REACTIONS (4)
  - Cytogenetic abnormality [Not Recovered/Not Resolved]
  - Low birth weight baby [Unknown]
  - Failure to thrive [Unknown]
  - Vitamin B12 deficiency [Unknown]
